FAERS Safety Report 8814154 (Version 1)
Quarter: 2012Q4

REPORT INFORMATION
  Report Type: Spontaneous
  Country: US (occurrence: None)
  Receive Date: 20120926
  Receipt Date: 20120926
  Transmission Date: 20130627
  Serious: No
  Sender: FDA-Public Use
  Company Number: None

PATIENT
  Age: 56 Year
  Sex: Male
  Weight: 86.4 kg

DRUGS (1)
  1. POLYETHYLENE GLYCOL 1000\PROPYLENE GLYCOL [Suspect]
     Indication: DRY EYE
     Dosage: 1-2 drops, prn, instill in eyes
     Dates: start: 201205, end: 201209

REACTIONS (2)
  - Drug ineffective [None]
  - Product substitution issue [None]
